FAERS Safety Report 4497313-4 (Version None)
Quarter: 2004Q3

REPORT INFORMATION
  Report Type: 
  Country: None (occurrence: None)
  Receive Date: 20040927
  Receipt Date: 20040722
  Transmission Date: 20050211
  Serious: No
  Sender: FDA-Public Use
  Company Number: USA040773442

PATIENT
  Age: 20 Year
  Sex: Female
  Weight: 73 kg

DRUGS (3)
  1. STRATTERA [Suspect]
     Indication: ATTENTION DEFICIT/HYPERACTIVITY DISORDER
     Dosage: 40 MG DAY
     Dates: start: 20040720
  2. LUVOX [Concomitant]
  3. LEXAPRO [Concomitant]

REACTIONS (1)
  - PILOERECTION [None]
